FAERS Safety Report 9172412 (Version 1)
Quarter: 2012Q4

REPORT INFORMATION
  Report Type: 
  Country: US (occurrence: US)
  Receive Date: 20120911
  Receipt Date: 20120911
  Transmission Date: 20130627
  Serious: No
  Sender: FDA-Public Use
  Company Number: US-ASTRAZENECA-2012SE64932

PATIENT
  Age: 689 Month
  Sex: Female
  Weight: 108.9 kg

DRUGS (6)
  1. SEROQUEL XR [Suspect]
     Indication: BIPOLAR DISORDER
     Route: 048
     Dates: start: 2011, end: 201208
  2. SEROQUEL XR [Suspect]
     Indication: BIPOLAR DISORDER
     Route: 048
     Dates: start: 201208
  3. CYMBALTA [Concomitant]
     Indication: DEPRESSION
     Route: 048
  4. LEVOTHYROXINE [Concomitant]
     Indication: THYROID DISORDER
     Route: 048
  5. XANAX [Concomitant]
     Indication: DEPRESSION
     Route: 048
  6. SLEEPING PILL [Concomitant]
     Indication: SLEEP DISORDER
     Dosage: As required
     Route: 048

REACTIONS (8)
  - Agitation [Unknown]
  - Emotional disorder [Unknown]
  - Pruritus [Unknown]
  - Irritability [Unknown]
  - Tremor [Unknown]
  - Drug withdrawal syndrome [Unknown]
  - Intentional drug misuse [Unknown]
  - Drug dose omission [Unknown]
